FAERS Safety Report 16704106 (Version 1)
Quarter: 2019Q3

REPORT INFORMATION
  Report Type: Spontaneous
  Country: US (occurrence: US)
  Receive Date: 20190814
  Receipt Date: 20190814
  Transmission Date: 20191004
  Serious: Yes (Hospitalization)
  Sender: FDA-Public Use
  Company Number: US-TEVA-2019-US-1089942

PATIENT
  Sex: Female

DRUGS (5)
  1. TRAMADOL. [Concomitant]
     Active Substance: TRAMADOL
  2. BENZONATATE. [Concomitant]
     Active Substance: BENZONATATE
  3. PROMETHAZINE [Concomitant]
     Active Substance: PROMETHAZINE HYDROCHLORIDE
  4. SYNRIBO [Suspect]
     Active Substance: OMACETAXINE MEPESUCCINATE
     Indication: CHRONIC MYELOID LEUKAEMIA
     Dosage: 2.5MG/0.71ML, FOR 14 DAYS
     Dates: start: 20190620
  5. FIORICET [Concomitant]
     Active Substance: ACETAMINOPHEN\BUTALBITAL\CAFFEINE

REACTIONS (2)
  - Alopecia [Unknown]
  - Neutrophil count decreased [Not Recovered/Not Resolved]

NARRATIVE: CASE EVENT DATE: 2019
